FAERS Safety Report 26164384 (Version 1)
Quarter: 2025Q4

REPORT INFORMATION
  Report Type: Report from Study
  Country: CN (occurrence: CN)
  Receive Date: 20251216
  Receipt Date: 20251216
  Transmission Date: 20260118
  Serious: Yes (Other)
  Sender: PFIZER
  Company Number: CN-TAKEDA-2022TUS034750

PATIENT
  Age: 49 Year
  Sex: Male
  Weight: 78 kg

DRUGS (28)
  1. BRENTUXIMAB VEDOTIN [Suspect]
     Active Substance: BRENTUXIMAB VEDOTIN
     Indication: Hodgkin^s disease
     Dosage: 100 MILLIGRAM, EVERY 3 WEEKS
     Route: 041
     Dates: start: 20220318
  2. BRENTUXIMAB VEDOTIN [Suspect]
     Active Substance: BRENTUXIMAB VEDOTIN
     Dosage: UNK
     Dates: start: 20220402
  3. BRENTUXIMAB VEDOTIN [Suspect]
     Active Substance: BRENTUXIMAB VEDOTIN
     Dosage: UNK
     Dates: start: 20220420
  4. BRENTUXIMAB VEDOTIN [Suspect]
     Active Substance: BRENTUXIMAB VEDOTIN
     Dosage: UNK
     Dates: start: 20220506
  5. BRENTUXIMAB VEDOTIN [Suspect]
     Active Substance: BRENTUXIMAB VEDOTIN
     Dosage: UNK
     Dates: start: 20220524
  6. BRENTUXIMAB VEDOTIN [Suspect]
     Active Substance: BRENTUXIMAB VEDOTIN
     Dosage: UNK
     Dates: start: 20220531
  7. BRENTUXIMAB VEDOTIN [Suspect]
     Active Substance: BRENTUXIMAB VEDOTIN
     Dosage: UNK
     Dates: start: 20220610
  8. DEXAMETHASONE [Suspect]
     Active Substance: DEXAMETHASONE
     Indication: Lymphoma
     Dosage: 5 MILLIGRAM, EVERY DAY
     Route: 042
     Dates: start: 20220318, end: 20220319
  9. DEXAMETHASONE [Suspect]
     Active Substance: DEXAMETHASONE
     Indication: Allergy prophylaxis
     Dosage: UNK
     Dates: start: 20220402
  10. VINDESINE [Suspect]
     Active Substance: VINDESINE
     Indication: Lymphoma
     Dosage: 4 MILLIGRAM, QD
     Route: 042
     Dates: start: 20220318, end: 20220319
  11. VINDESINE [Suspect]
     Active Substance: VINDESINE
     Dosage: UNK
     Dates: start: 20220402
  12. DACARBAZINE [Suspect]
     Active Substance: DACARBAZINE
     Indication: Lymphoma
     Dosage: 0.7 GRAM, QD
     Route: 042
     Dates: start: 20220318, end: 20220319
  13. DACARBAZINE [Suspect]
     Active Substance: DACARBAZINE
     Dosage: UNK
     Dates: start: 20220402
  14. METHYLCOBALAMIN [Concomitant]
     Active Substance: METHYLCOBALAMIN
     Indication: Prophylaxis
     Dosage: 0.5 MILLIGRAM, BID
     Route: 042
     Dates: start: 20220317, end: 20220320
  15. METHYLCOBALAMIN [Concomitant]
     Active Substance: METHYLCOBALAMIN
     Indication: Central nervous system stimulation
  16. METHYLCOBALAMIN [Concomitant]
     Active Substance: METHYLCOBALAMIN
     Indication: Central nervous system stimulation
  17. ADENOSINE CYCLIC PHOSPHATE MEGLUMINE [Concomitant]
     Active Substance: ADENOSINE CYCLIC PHOSPHATE MEGLUMINE
     Indication: Cardiovascular event prophylaxis
     Dosage: 150 MILLIGRAM, QD
     Route: 042
     Dates: start: 20220316, end: 20220320
  18. LECITHIN [Concomitant]
     Active Substance: LECITHIN
     Indication: Prophylaxis
     Dosage: 20 MILLILITER, QD
     Route: 042
     Dates: start: 20220316, end: 20220320
  19. OMEPRAZOLE [Concomitant]
     Active Substance: OMEPRAZOLE
     Indication: Gastrointestinal disorder prophylaxis
     Dosage: 40 MILLIGRAM, QD
     Route: 042
     Dates: start: 20220316, end: 20220320
  20. ONDANSETRON HYDROCHLORIDE [Concomitant]
     Active Substance: ONDANSETRON HYDROCHLORIDE
     Indication: Antiemetic supportive care
     Dosage: 16 MILLIGRAM, QD
     Route: 048
     Dates: start: 20220316, end: 20220320
  21. APREPITANT [Concomitant]
     Active Substance: APREPITANT
     Indication: Antiemetic supportive care
     Dosage: UNK, QD
     Route: 048
     Dates: start: 20220316, end: 20220320
  22. COMPOUND BORAX [Concomitant]
     Indication: Infection prophylaxis
     Dosage: 20 MILLILITER, TID
     Route: 065
     Dates: start: 20220316, end: 20220320
  23. LACTULOSE [Concomitant]
     Active Substance: LACTULOSE
     Indication: Constipation prophylaxis
     Dosage: 10 MILLILITER, TID
     Route: 048
     Dates: start: 20220316, end: 20220320
  24. TORSEMIDE [Concomitant]
     Active Substance: TORSEMIDE
     Indication: Allergy prophylaxis
     Dosage: 10 MILLIGRAM, QD
     Route: 042
     Dates: start: 20220317, end: 20220320
  25. UBENIMEX [Concomitant]
     Active Substance: UBENIMEX
     Indication: Immune disorder prophylaxis
     Dosage: 30 MILLIGRAM, QD
     Route: 048
     Dates: start: 20220319, end: 20220321
  26. DOXORUBICIN HYDROCHLORIDE [Concomitant]
     Active Substance: DOXORUBICIN HYDROCHLORIDE
     Indication: Lymphoma
     Dosage: 20 MILLIGRAM, QD
     Route: 042
     Dates: start: 20220317, end: 20220319
  27. HUMAN INTERLEUKIN-11 [Concomitant]
     Indication: Prophylaxis
     Dosage: 3 MILLIGRAM, QD
     Route: 065
     Dates: start: 20220316, end: 20220320
  28. THYMOPENTIN [Concomitant]
     Active Substance: THYMOPENTIN
     Indication: Immune disorder prophylaxis
     Dosage: 20 MILLIGRAM
     Route: 058
     Dates: start: 20220317, end: 20220320

REACTIONS (2)
  - Drug-induced liver injury [Unknown]
  - Off label use [Recovered/Resolved]

NARRATIVE: CASE EVENT DATE: 20220318
